FAERS Safety Report 15655155 (Version 1)
Quarter: 2018Q4

REPORT INFORMATION
  Report Type: Spontaneous
  Country: US (occurrence: US)
  Receive Date: 20181126
  Receipt Date: 20181126
  Transmission Date: 20190205
  Serious: No
  Sender: FDA-Public Use
  Company Number: US-AMGEN-USASP2018166109

PATIENT
  Age: 64 Year
  Sex: Female

DRUGS (1)
  1. BLINCYTO [Suspect]
     Active Substance: BLINATUMOMAB
     Indication: B PRECURSOR TYPE ACUTE LEUKAEMIA
     Dosage: UNK
     Route: 065
     Dates: start: 201811

REACTIONS (6)
  - Nausea [Unknown]
  - Muscular weakness [Unknown]
  - Disorientation [Recovered/Resolved]
  - Chills [Unknown]
  - Vomiting [Unknown]
  - Pain in extremity [Unknown]

NARRATIVE: CASE EVENT DATE: 201811
